FAERS Safety Report 7792460-3 (Version None)
Quarter: 2011Q4

REPORT INFORMATION
  Report Type: 
  Country: None (occurrence: None)
  Receive Date: 20111003
  Receipt Date: 20110920
  Transmission Date: 20120403
  Serious: Yes (Hospitalization, Other)
  Sender: FDA-Public Use
  Company Number: US-ELI_LILLY_AND_COMPANY-US201108002821

PATIENT
  Sex: Female

DRUGS (11)
  1. FORTEO [Suspect]
     Indication: OSTEOPOROSIS
     Dosage: 20 UG, QD
     Dates: start: 20110101
  2. AMBIEN [Concomitant]
  3. VITAMIN D [Concomitant]
     Dosage: UNK UNK, MONTHLY (1/M)
  4. TRAMADOL HCL [Concomitant]
     Dosage: UNK, PRN
  5. FORTEO [Suspect]
     Dosage: 20 UG, QD
  6. ATENOLOL [Concomitant]
     Dosage: 50 MG, UNK
  7. NORVASC [Concomitant]
     Dosage: 5 MG, UNK
  8. INDAPAMIDE [Concomitant]
     Dosage: 1.25 MG, UNK
  9. MULTIVITAMIN [Concomitant]
  10. SYNTHROID [Concomitant]
  11. TEKTURNA [Concomitant]

REACTIONS (6)
  - INFECTION [None]
  - MALAISE [None]
  - ASTHENIA [None]
  - DRUG HYPERSENSITIVITY [None]
  - SKIN EXFOLIATION [None]
  - RASH [None]
